FAERS Safety Report 6388608-8 (Version None)
Quarter: 2009Q4

REPORT INFORMATION
  Report Type: 
  Country: None (occurrence: None)
  Receive Date: 20091005
  Receipt Date: 20090923
  Transmission Date: 20100525
  Serious: Yes (Death)
  Sender: FDA-Public Use
  Company Number: GB-JNJFOC-20091000378

PATIENT
  Age: 25 Year
  Sex: Female

DRUGS (6)
  1. INFLIXIMAB [Suspect]
     Route: 042
  2. INFLIXIMAB [Suspect]
     Route: 042
  3. INFLIXIMAB [Suspect]
     Route: 042
  4. INFLIXIMAB [Suspect]
     Indication: CROHN'S DISEASE
     Route: 042
  5. ADALIMUMAB [Suspect]
     Indication: CROHN'S DISEASE
     Dosage: 6 MONTHS OF THERAPY
  6. AZATHIOPRINE [Concomitant]
     Dates: start: 20030101, end: 20070101

REACTIONS (1)
  - COLON CANCER STAGE IV [None]
